FAERS Safety Report 5665262-1 (Version None)
Quarter: 2008Q1

REPORT INFORMATION
  Report Type: 
  Country: None (occurrence: None)
  Receive Date: 20080314
  Receipt Date: 20071219
  Transmission Date: 20080703
  Serious: No
  Sender: FDA-Public Use
  Company Number: US-ABBOTT-06P-163-0350756-00

PATIENT
  Sex: Female
  Weight: 49.94 kg

DRUGS (5)
  1. HUMIRA [Suspect]
     Indication: RHEUMATOID ARTHRITIS
     Route: 058
     Dates: start: 20050101
  2. HUMIRA [Suspect]
     Route: 058
  3. PREDNISONE TAB [Concomitant]
     Indication: RHEUMATOID ARTHRITIS
     Route: 048
     Dates: start: 20030101
  4. LEVOTHYROXINE SODIUM [Concomitant]
     Indication: HYPOTHYROIDISM
     Route: 048
     Dates: start: 19970101
  5. TETRYZOLINE HYDROCHLORIDE [Concomitant]
     Indication: GLAUCOMA
     Route: 047

REACTIONS (3)
  - ACCIDENTAL EXPOSURE [None]
  - INJECTION SITE IRRITATION [None]
  - INJECTION SITE PAIN [None]
